FAERS Safety Report 6737599-6 (Version None)
Quarter: 2010Q2

REPORT INFORMATION
  Report Type: 
  Country: None (occurrence: None)
  Receive Date: 20100521
  Receipt Date: 20100521
  Transmission Date: 20101027
  Serious: Yes (Other)
  Sender: FDA-Public Use
  Company Number: None

PATIENT
  Age: 51 Year
  Sex: Female
  Weight: 93.441 kg

DRUGS (1)
  1. HYDROCORTISONE TABLETS 10 MG. QUALITEST [Suspect]
     Indication: ADDISON'S DISEASE
     Dosage: 30 MG A DAY SPLIT INTO 2 DOSES PO
     Route: 048
     Dates: start: 19880401, end: 20100520

REACTIONS (3)
  - DRUG EFFECT DECREASED [None]
  - INCORRECT DOSE ADMINISTERED [None]
  - PRODUCT SUBSTITUTION ISSUE [None]
